FAERS Safety Report 16311200 (Version 1)
Quarter: 2019Q2

REPORT INFORMATION
  Report Type: Spontaneous
  Country: US (occurrence: US)
  Receive Date: 20190514
  Receipt Date: 20190514
  Transmission Date: 20190711
  Serious: No
  Sender: FDA-Public Use
  Company Number: US-MAYNE PHARMA-2018MYN001558

PATIENT

DRUGS (1)
  1. LIOTHYRONINE [Suspect]
     Active Substance: LIOTHYRONINE
     Indication: HYPOTHYROIDISM
     Dosage: 25 MCG, QAM
     Route: 048

REACTIONS (6)
  - Alopecia [Unknown]
  - Drug ineffective [Unknown]
  - Malaise [Unknown]
  - Tri-iodothyronine decreased [Unknown]
  - Fatigue [Unknown]
  - Product substitution issue [Unknown]

NARRATIVE: CASE EVENT DATE: 2018
